FAERS Safety Report 21218220 (Version 2)
Quarter: 2022Q3

REPORT INFORMATION
  Report Type: Spontaneous
  Country: US (occurrence: US)
  Receive Date: 20220816
  Receipt Date: 20220818
  Transmission Date: 20221026
  Serious: Yes (Hospitalization, Other)
  Sender: FDA-Public Use
  Company Number: US-PFIZER INC-202201049804

PATIENT
  Age: 8 Year
  Sex: Male

DRUGS (3)
  1. CARBOPLATIN [Suspect]
     Active Substance: CARBOPLATIN
     Indication: Neoplasm
     Dosage: HIGH-DOSE, CYCLIC
  2. ETOPOSIDE [Suspect]
     Active Substance: ETOPOSIDE
     Indication: Neoplasm
     Dosage: UNK, CYCLIC
  3. THIOTEPA [Suspect]
     Active Substance: THIOTEPA
     Indication: Neoplasm
     Dosage: UNK, CYCLIC

REACTIONS (4)
  - Clostridium difficile colitis [Unknown]
  - Engraftment syndrome [Unknown]
  - Electrolyte depletion [Unknown]
  - Feeding disorder [Unknown]
